FAERS Safety Report 26176928 (Version 1)
Quarter: 2025Q4

REPORT INFORMATION
  Report Type: Spontaneous
  Country: CN (occurrence: CN)
  Receive Date: 20251218
  Receipt Date: 20251218
  Transmission Date: 20260118
  Serious: Yes (Other)
  Sender: BAXTER
  Company Number: None

PATIENT
  Age: 60 Year
  Sex: Female
  Weight: 53 kg

DRUGS (13)
  1. CYCLOPHOSPHAMIDE [Suspect]
     Active Substance: CYCLOPHOSPHAMIDE
     Indication: Breast cancer female
     Dosage: 640 MG, QD (D1)
     Route: 041
     Dates: start: 20251204, end: 20251204
  2. SODIUM CHLORIDE [Suspect]
     Active Substance: SODIUM CHLORIDE
     Dosage: 250 ML, QD (D1) WITH EPIRUBICIN
     Route: 041
     Dates: start: 20251204, end: 20251204
  3. SODIUM CHLORIDE [Suspect]
     Active Substance: SODIUM CHLORIDE
     Dosage: 500 ML, QD (D1) WITH CYCLOPHOSPHAMIDE
     Route: 041
     Dates: start: 20251204, end: 20251204
  4. SODIUM CHLORIDE [Suspect]
     Active Substance: SODIUM CHLORIDE
     Dosage: 250 ML, QD (D1) WITH DOCETAXEL (ONCE EVERY 21 DAYS)
     Route: 041
     Dates: start: 20251204, end: 20251204
  5. DOCETAXEL [Suspect]
     Active Substance: DOCETAXEL
     Indication: Breast cancer female
     Dosage: 100 MG, QD (D1) (ONCE EVERY 21 DAYS)
     Route: 041
     Dates: start: 20251204, end: 20251204
  6. EPIRUBICIN HYDROCHLORIDE [Suspect]
     Active Substance: EPIRUBICIN HYDROCHLORIDE
     Indication: Breast cancer female
     Dosage: 110 MG, QD (D1)
     Route: 041
     Dates: start: 20251204, end: 20251204
  7. DEXAMETHASONE SODIUM PHOSPHATE [Suspect]
     Active Substance: DEXAMETHASONE SODIUM PHOSPHATE
     Indication: Prophylaxis
     Dosage: 2 ML, QD
     Route: 041
     Dates: start: 20251204, end: 20251204
  8. DIPHENHYDRAMINE HYDROCHLORIDE [Suspect]
     Active Substance: DIPHENHYDRAMINE HYDROCHLORIDE
     Indication: Prophylaxis of nausea and vomiting
     Dosage: 1 ML, QD
     Route: 030
     Dates: start: 20251204, end: 20251204
  9. CIMETIDINE [Suspect]
     Active Substance: CIMETIDINE
     Indication: Prophylaxis against gastrointestinal ulcer
     Dosage: 2 ML, QD
     Route: 041
     Dates: start: 20251204, end: 20251204
  10. METFORMIN HYDROCHLORIDE [Concomitant]
     Active Substance: METFORMIN HYDROCHLORIDE
     Indication: Hyperglycaemia
     Dosage: 0.5 G, TID
     Route: 048
  11. ENTECAVIR [Concomitant]
     Active Substance: ENTECAVIR
     Indication: Antiviral treatment
     Route: 048
  12. DEXAMETHASONE [Concomitant]
     Active Substance: DEXAMETHASONE
     Indication: Drug hypersensitivity
     Dosage: 7.5 MG/TIME, BID
     Route: 048
     Dates: start: 20251203
  13. DEXAMETHASONE [Concomitant]
     Active Substance: DEXAMETHASONE
     Indication: Prophylaxis

REACTIONS (1)
  - Myelosuppression [Recovering/Resolving]

NARRATIVE: CASE EVENT DATE: 20251206
